FAERS Safety Report 10600857 (Version 1)
Quarter: 2014Q4

REPORT INFORMATION
  Report Type: Spontaneous
  Country: US (occurrence: None)
  Receive Date: 20141121
  Receipt Date: 20141121
  Transmission Date: 20150529
  Serious: Yes (Other)
  Sender: FDA-Public Use
  Company Number: None

PATIENT
  Age: 33 Year
  Sex: Female
  Weight: 65.77 kg

DRUGS (3)
  1. VENLAFAXINE HCL [Suspect]
     Active Substance: VENLAFAXINE HYDROCHLORIDE
     Indication: DEPRESSION
     Dosage: ONCE A DAY ONCE DAILY TAKEN BY MOUTH
     Route: 048
     Dates: start: 20140502, end: 20141120
  2. VENLAFAXINE HCL [Suspect]
     Active Substance: VENLAFAXINE HYDROCHLORIDE
     Dosage: ONCE A DAY ONCE DAILY TAKEN BY MOUTH
     Route: 048
     Dates: start: 20140502, end: 20141120
  3. VENLAFAXINE HCL [Suspect]
     Active Substance: VENLAFAXINE HYDROCHLORIDE
     Indication: ANXIETY
     Dosage: ONCE A DAY ONCE DAILY TAKEN BY MOUTH
     Route: 048
     Dates: start: 20140502, end: 20141120

REACTIONS (16)
  - Headache [None]
  - Paraesthesia [None]
  - Withdrawal syndrome [None]
  - Hypertension [None]
  - Hyperhidrosis [None]
  - Panic attack [None]
  - Depression [None]
  - Drug abuser [None]
  - Musculoskeletal stiffness [None]
  - Osteoporosis [None]
  - Insomnia [None]
  - Nightmare [None]
  - Anger [None]
  - Anxiety [None]
  - Vision blurred [None]
  - Self-injurious ideation [None]

NARRATIVE: CASE EVENT DATE: 20140706
